FAERS Safety Report 11836023 (Version 1)
Quarter: 2015Q4

REPORT INFORMATION
  Report Type: Report from Study
  Country: AR (occurrence: AR)
  Receive Date: 20151215
  Receipt Date: 20151215
  Transmission Date: 20160305
  Serious: Yes (Other)
  Sender: FDA-Public Use
  Company Number: PHHY2015AR163279

PATIENT
  Sex: Female

DRUGS (2)
  1. DIOVAN [Suspect]
     Active Substance: VALSARTAN
     Dosage: 320 MG, UNK
     Route: 065
     Dates: start: 201508
  2. DIOVAN [Suspect]
     Active Substance: VALSARTAN
     Indication: HYPERTENSION
     Dosage: 1.5 DF(160 MG), QD
     Route: 065
     Dates: end: 201508

REACTIONS (6)
  - Blood glucose increased [Recovering/Resolving]
  - Blood pressure increased [Recovering/Resolving]
  - Wrong technique in product usage process [Unknown]
  - Depressed mood [Unknown]
  - Insulin resistant diabetes [Recovering/Resolving]
  - Oral infection [Recovering/Resolving]
